FAERS Safety Report 15929755 (Version 3)
Quarter: 2019Q1

REPORT INFORMATION
  Report Type: Report from Study
  Country: JP (occurrence: JP)
  Receive Date: 20190206
  Receipt Date: 20190212
  Transmission Date: 20190417
  Serious: Yes (Other)
  Sender: FDA-Public Use
  Company Number: JP-BIOCODEX SA-201801337

PATIENT
  Age: 1 Year
  Sex: Male

DRUGS (22)
  1. SODIUM VALPROATE SANDOZ [Concomitant]
     Active Substance: VALPROATE SODIUM
     Dosage: 240 MG, QD
     Route: 048
     Dates: start: 20180404, end: 20180508
  2. LEVETIRACETAM. [Concomitant]
     Active Substance: LEVETIRACETAM
     Dosage: 150 MG, QD
     Route: 048
     Dates: start: 20171206, end: 20180222
  3. LEVETIRACETAM. [Concomitant]
     Active Substance: LEVETIRACETAM
     Dosage: 100 MG, QD
     Route: 048
     Dates: start: 20180223, end: 20180315
  4. DIACOMIT [Suspect]
     Active Substance: STIRIPENTOL
     Dosage: 150 MG, QD
     Route: 048
     Dates: start: 20170829, end: 20170904
  5. MYSTAN [Suspect]
     Active Substance: CLOBAZAM
     Indication: SEVERE MYOCLONIC EPILEPSY OF INFANCY
     Dosage: 1.5 MG, QD
     Route: 048
     Dates: start: 20170727, end: 20170802
  6. MYSTAN [Suspect]
     Active Substance: CLOBAZAM
     Dosage: 3.5 UNK, UNK
     Route: 048
     Dates: start: 20180127, end: 20180222
  7. LEVETIRACETAM. [Concomitant]
     Active Substance: LEVETIRACETAM
     Dosage: 100 MG, QD
     Route: 048
     Dates: start: 20180614, end: 20180620
  8. LEVETIRACETAM. [Concomitant]
     Active Substance: LEVETIRACETAM
     Dosage: 200 MG, QD
     Route: 048
     Dates: start: 20171226, end: 20180222
  9. MYSTAN [Suspect]
     Active Substance: CLOBAZAM
     Dosage: 4 MG, QD
     Route: 048
     Dates: start: 20180112, end: 20180126
  10. MYSTAN [Suspect]
     Active Substance: CLOBAZAM
     Dosage: 3 UNK, UNK
     Route: 048
     Dates: start: 20180223
  11. MYSTAN [Suspect]
     Active Substance: CLOBAZAM
     Dosage: 3 MG, QD
     Route: 048
     Dates: start: 20170803, end: 20170809
  12. MYSTAN [Suspect]
     Active Substance: CLOBAZAM
     Dosage: 5 MG, QD
     Route: 048
     Dates: start: 20170810, end: 20180111
  13. LUPIAL [Suspect]
     Active Substance: PHENOBARBITAL SODIUM
     Indication: SEVERE MYOCLONIC EPILEPSY OF INFANCY
     Dosage: 12.5 MG, QD
     Route: 054
     Dates: start: 20180104, end: 20180104
  14. LEVETIRACETAM. [Concomitant]
     Active Substance: LEVETIRACETAM
     Dosage: 250 MG, QD
     Route: 048
     Dates: start: 20170822, end: 20170925
  15. DIACOMIT [Suspect]
     Active Substance: STIRIPENTOL
     Dosage: 300 MG, QD
     Route: 048
     Dates: start: 20170905, end: 20171009
  16. DIACOMIT [Suspect]
     Active Substance: STIRIPENTOL
     Dosage: 350 MG, QD
     Route: 048
     Dates: start: 20171010
  17. POTASSIUM BROMIDE [Concomitant]
     Active Substance: POTASSIUM BROMIDE
     Indication: SEVERE MYOCLONIC EPILEPSY OF INFANCY
     Dosage: 0.6 MG, QD
     Route: 048
  18. DIACOMIT [Suspect]
     Active Substance: STIRIPENTOL
     Indication: SEVERE MYOCLONIC EPILEPSY OF INFANCY
     Dosage: 75 MG, QD
     Route: 048
     Dates: start: 20170822, end: 20170828
  19. LEVETIRACETAM. [Concomitant]
     Active Substance: LEVETIRACETAM
     Dosage: 200 MG, QD
     Route: 048
     Dates: start: 20180621
  20. SODIUM VALPROATE SANDOZ [Concomitant]
     Active Substance: VALPROATE SODIUM
     Indication: SEVERE MYOCLONIC EPILEPSY OF INFANCY
     Dosage: 199.8 MG, QD
     Route: 048
     Dates: start: 20161207, end: 20180403
  21. SODIUM VALPROATE SANDOZ [Concomitant]
     Active Substance: VALPROATE SODIUM
     Dosage: 259.8 MG, QD
     Route: 048
     Dates: start: 20180509
  22. LEVETIRACETAM. [Concomitant]
     Active Substance: LEVETIRACETAM
     Indication: SEVERE MYOCLONIC EPILEPSY OF INFANCY
     Dosage: 300 MG, QD
     Route: 048
     Dates: end: 20170821

REACTIONS (2)
  - Somnolence [Recovered/Resolved]
  - Dizziness [Recovered/Resolved]

NARRATIVE: CASE EVENT DATE: 20180104
